FAERS Safety Report 7694664-7 (Version None)
Quarter: 2011Q3

REPORT INFORMATION
  Report Type: 
  Country: None (occurrence: None)
  Receive Date: 20110816
  Receipt Date: 20110809
  Transmission Date: 20111222
  Serious: Yes (Death)
  Sender: FDA-Public Use
  Company Number: JPI-P-015064

PATIENT
  Age: 56 Year
  Sex: Male

DRUGS (2)
  1. XYREM [Suspect]
     Indication: PRODUCT USED FOR UNKNOWN INDICATION
     Dosage: 3.5, 8 GM (1.75, 4 GM, 2 IN 1 D), ORAL
     Route: 046
     Dates: start: 20021115
  2. XYREM [Suspect]
     Indication: PRODUCT USED FOR UNKNOWN INDICATION
     Dosage: 3.5, 8 GM (1.75, 4 GM, 2 IN 1 D), ORAL
     Route: 046
     Dates: start: 20031215, end: 20040702

REACTIONS (1)
  - DEATH [None]
